FAERS Safety Report 5604646-4 (Version None)
Quarter: 2008Q1

REPORT INFORMATION
  Report Type: 
  Country: None (occurrence: None)
  Receive Date: 20080128
  Receipt Date: 20080123
  Transmission Date: 20080703
  Serious: Yes (Hospitalization, Disabling, Other)
  Sender: FDA-Public Use
  Company Number: GB-MERCK-0611GBR00048

PATIENT
  Sex: Male

DRUGS (4)
  1. SINGULAIR [Suspect]
     Indication: HYPERSENSITIVITY
     Route: 048
     Dates: start: 20060821, end: 20061128
  2. SINGULAIR [Suspect]
     Indication: ASTHMA
     Route: 048
     Dates: start: 20060821, end: 20061128
  3. ALBUTEROL [Concomitant]
     Indication: ASTHMA
     Route: 065
     Dates: end: 20070118
  4. BUDESONIDE AND FORMOTEROL FUMARATE [Concomitant]
     Indication: ASTHMA
     Route: 065
     Dates: start: 20060821

REACTIONS (3)
  - ASTHMA [None]
  - EOSINOPHIL COUNT INCREASED [None]
  - PHOTODERMATOSIS [None]
